FAERS Safety Report 25644630 (Version 1)
Quarter: 2025Q3

REPORT INFORMATION
  Report Type: Spontaneous
  Country: EU (occurrence: EU)
  Receive Date: 20250805
  Receipt Date: 20250805
  Transmission Date: 20251021
  Serious: Yes (Death)
  Sender: ABBVIE
  Company Number: EU-ABBVIE-6399347

PATIENT
  Age: 50 Year
  Sex: Male
  Weight: 83 kg

DRUGS (2)
  1. SKYRIZI [Suspect]
     Active Substance: RISANKIZUMAB-RZAA
     Indication: Psoriasis
     Dosage: 150 MG/ 12 WEEKS.?FORM STRENGTH: 150 MILLIGRAM.?FREQUENCY TEXT: EVERY 3 MONTH.?SOLUTION FOR INJEC...
     Route: 058
     Dates: start: 20210204, end: 20241220
  2. Tanydon [Concomitant]
     Indication: Hypertension
     Dosage: FORM STRENGTH: 80 MILLIGRAM.
     Route: 048
     Dates: start: 202212

REACTIONS (1)
  - Brain neoplasm [Fatal]

NARRATIVE: CASE EVENT DATE: 20250101
